FAERS Safety Report 5361569-6 (Version None)
Quarter: 2007Q2

REPORT INFORMATION
  Report Type: 
  Country: None (occurrence: None)
  Receive Date: 20070619
  Receipt Date: 20070608
  Transmission Date: 20071010
  Serious: Yes (Other)
  Sender: FDA-Public Use
  Company Number: US-JNJFOC-20070301663

PATIENT
  Sex: Female
  Weight: 80.29 kg

DRUGS (2)
  1. DURAGESIC-100 [Suspect]
     Indication: PAIN
     Route: 062
  2. VICODIN [Concomitant]
     Indication: PAIN
     Route: 048

REACTIONS (8)
  - DEPRESSION [None]
  - DRUG EFFECT DECREASED [None]
  - INFLAMMATION [None]
  - INSOMNIA [None]
  - MENTAL IMPAIRMENT [None]
  - NEURALGIA [None]
  - RED BLOOD CELL SEDIMENTATION RATE INCREASED [None]
  - WRONG TECHNIQUE IN DRUG USAGE PROCESS [None]
